FAERS Safety Report 6722742-5 (Version None)
Quarter: 2010Q2

REPORT INFORMATION
  Report Type: 
  Country: None (occurrence: None)
  Receive Date: 20100511
  Receipt Date: 20100428
  Transmission Date: 20101027
  Serious: Yes (Life-Threatening, Hospitalization)
  Sender: FDA-Public Use
  Company Number: 2010AL002573

PATIENT
  Age: 66 Year
  Sex: Male

DRUGS (9)
  1. DOXAZOSIN MESYLATE [Suspect]
     Indication: HYPERTENSION
     Dosage: 8 MG; QD; PO
     Route: 048
  2. RAMIPRIL [Suspect]
     Indication: HYPERTENSION
     Dosage: 10 MG; QD; PO
     Route: 048
  3. BISOPROLOL [Concomitant]
  4. ISOSORBIDE DINITRATE [Concomitant]
  5. ACETYLSALICYLIC ACID [Concomitant]
  6. HYDROCHLOROTHIAZIDE [Concomitant]
  7. METFORMIN HYDROCHLORIDE [Concomitant]
  8. FELODIPINE [Concomitant]
  9. SIMVASTATIN [Concomitant]

REACTIONS (14)
  - ACTIVATED PARTIAL THROMBOPLASTIN TIME SHORTENED [None]
  - ALANINE AMINOTRANSFERASE INCREASED [None]
  - ASPARTATE AMINOTRANSFERASE INCREASED [None]
  - BLOOD GLUCOSE INCREASED [None]
  - BLOOD UREA INCREASED [None]
  - CEREBRAL ARTERY STENOSIS [None]
  - DILATATION VENTRICULAR [None]
  - FEELING ABNORMAL [None]
  - HEART RATE INCREASED [None]
  - HYPOTENSION [None]
  - LEFT VENTRICULAR HYPERTROPHY [None]
  - MITRAL VALVE INCOMPETENCE [None]
  - SYNCOPE [None]
  - THERAPEUTIC RESPONSE DECREASED [None]
